FAERS Safety Report 8215079-9 (Version None)
Quarter: 2012Q1

REPORT INFORMATION
  Report Type: 
  Country: None (occurrence: None)
  Receive Date: 20120314
  Receipt Date: 20120307
  Transmission Date: 20120608
  Serious: Yes (Other)
  Sender: FDA-Public Use
  Company Number: 2010MA002618

PATIENT
  Sex: Male
  Weight: 51.7101 kg

DRUGS (20)
  1. ASPIRIN [Concomitant]
  2. DYAZIDE [Concomitant]
  3. SPIRIVA [Concomitant]
  4. STOOL SOFTNER [Concomitant]
  5. PROPOXYPHENE HYDROCHLORIDE [Concomitant]
  6. ARICEPT [Concomitant]
  7. NEXIUM [Concomitant]
  8. ATIVAN [Concomitant]
  9. CIPROFLOXACIN [Concomitant]
  10. METOCLOPRAMIDE HYDROCHLORIDE [Suspect]
     Indication: GASTRIC ULCER
     Dosage: 10 MG;PO
     Route: 048
     Dates: start: 20080202, end: 20091210
  11. FLOMAX [Concomitant]
  12. PREVACID [Concomitant]
  13. FOLIC ACID [Concomitant]
  14. LISINOPRIL [Concomitant]
  15. FERROUS SULFATE TAB [Concomitant]
  16. ISOSORBIDE MONONITRATE [Concomitant]
  17. MAGNESIUM HYDROXIDE TAB [Concomitant]
  18. ROLAIDS [Concomitant]
  19. AMBIEN [Concomitant]
  20. NITROGLYCERIN [Concomitant]

REACTIONS (14)
  - PROTRUSION TONGUE [None]
  - EXCESSIVE EYE BLINKING [None]
  - WEIGHT DECREASED [None]
  - GASTRIC POLYPS [None]
  - INGUINAL HERNIA [None]
  - EXTRAPYRAMIDAL DISORDER [None]
  - GASTROOESOPHAGEAL REFLUX DISEASE [None]
  - TARDIVE DYSKINESIA [None]
  - MUCOSAL EROSION [None]
  - ABDOMINAL PAIN [None]
  - ECONOMIC PROBLEM [None]
  - VOMITING [None]
  - EMOTIONAL DISORDER [None]
  - NAUSEA [None]
